FAERS Safety Report 5905431-6 (Version None)
Quarter: 2008Q4

REPORT INFORMATION
  Report Type: 
  Country: None (occurrence: None)
  Receive Date: 20081001
  Receipt Date: 20081001
  Transmission Date: 20090506
  Serious: No
  Sender: FDA-Public Use
  Company Number: None

PATIENT
  Sex: Female
  Weight: 55.7924 kg

DRUGS (2)
  1. KEFLEX [Suspect]
  2. ACYCLOVIR [Suspect]

REACTIONS (3)
  - MEDICATION ERROR [None]
  - RASH [None]
  - THERAPEUTIC RESPONSE UNEXPECTED WITH DRUG SUBSTITUTION [None]
